FAERS Safety Report 4682659-7 (Version None)
Quarter: 2005Q2

REPORT INFORMATION
  Report Type: 
  Country: None (occurrence: None)
  Receive Date: 20050606
  Receipt Date: 20050509
  Transmission Date: 20051028
  Serious: Yes (Hospitalization)
  Sender: FDA-Public Use
  Company Number: FR-GLAXOSMITHKLINE-B0380730B

PATIENT
  Sex: Female

DRUGS (6)
  1. EPIVIR [Suspect]
     Indication: HIV INFECTION
     Dosage: 300MG PER DAY
     Dates: start: 20041028, end: 20050324
  2. VIDEX [Suspect]
     Indication: HIV INFECTION
     Dosage: 250MG PER DAY
     Dates: start: 20040801, end: 20050324
  3. NORVIR [Suspect]
     Indication: HIV INFECTION
     Dosage: 100MG PER DAY
     Dates: start: 20040729, end: 20050324
  4. REYATAZ [Suspect]
     Indication: HIV INFECTION
     Dosage: 300MG PER DAY
     Dates: start: 20040729, end: 20050324
  5. VIREAD [Suspect]
     Indication: HIV INFECTION
     Dates: start: 20040729, end: 20041028
  6. RETROVIR [Concomitant]
     Route: 065
     Dates: start: 20050328

REACTIONS (3)
  - DRUG EXPOSURE DURING PREGNANCY [None]
  - ENTEROCOLITIS HAEMORRHAGIC [None]
  - HYPOGLYCAEMIA [None]
